FAERS Safety Report 9058608 (Version 1)
Quarter: 2013Q1

REPORT INFORMATION
  Report Type: Spontaneous
  Country: US (occurrence: US)
  Receive Date: 20130211
  Receipt Date: 20130211
  Transmission Date: 20140127
  Serious: No
  Sender: FDA-Public Use
  Company Number: US-BAYER-2013-006776

PATIENT
  Age: 70 Year
  Sex: Female

DRUGS (4)
  1. AVELOX [Suspect]
     Indication: BRONCHITIS
  2. FEMERA [Concomitant]
  3. ELMIRON [Concomitant]
  4. NEXIUM [Concomitant]

REACTIONS (2)
  - Cystitis noninfective [Not Recovered/Not Resolved]
  - Bladder pain [Not Recovered/Not Resolved]
